FAERS Safety Report 5858818-4 (Version None)
Quarter: 2008Q3

REPORT INFORMATION
  Report Type: 
  Country: None (occurrence: None)
  Receive Date: 20080825
  Receipt Date: 20080818
  Transmission Date: 20090109
  Serious: Yes (Other)
  Sender: FDA-Public Use
  Company Number: 1000000569

PATIENT
  Age: 58 Year
  Sex: Female

DRUGS (10)
  1. ARMOUR THYROID (THYROID) (90 MILLIGRAM, TABLETS) [Suspect]
     Indication: HYPOTHYROIDISM
     Dosage: 90 MG (50 MG,L IN 1 D), ORAL
     Route: 048
  2. JANUVIA [Concomitant]
  3. WELLBUTRIN [Concomitant]
  4. TRICOR [Concomitant]
  5. ALBUTEROL [Concomitant]
  6. SPIRIVA [Concomitant]
  7. CLONIDINE [Concomitant]
  8. LOTREL [Concomitant]
  9. CENTRUM SILVER [Concomitant]
  10. GLUCOSAMINE CHONDROITIN [Concomitant]

REACTIONS (1)
  - RENAL IMPAIRMENT [None]
